FAERS Safety Report 8271338-5 (Version None)
Quarter: 2012Q2

REPORT INFORMATION
  Report Type: 
  Country: None (occurrence: None)
  Receive Date: 20120410
  Receipt Date: 20120405
  Transmission Date: 20120825
  Serious: Yes (Hospitalization, Other)
  Sender: FDA-Public Use
  Company Number: FR-PFIZER INC-2012085918

PATIENT
  Age: 76 Year
  Sex: Female

DRUGS (5)
  1. VOLTAREN [Suspect]
     Indication: BACK PAIN
     Dosage: 1 DF, 1X/DAY
     Route: 003
     Dates: start: 20111201, end: 20120204
  2. CRESTOR [Suspect]
     Dosage: 5 MG, 1X/DAY
     Route: 048
     Dates: start: 20100101, end: 20120204
  3. LYRICA [Suspect]
     Dosage: 75 MG, 1X/DAY
     Route: 048
     Dates: start: 20110101, end: 20120204
  4. VALSARTAN  AND HYDROCHLOROTHIAZIDE [Suspect]
     Indication: HYPERTENSION
     Dosage: 160 MG/ 12.5 MG, DAILY
     Route: 048
     Dates: start: 20110101, end: 20120204
  5. RABEPRAZOLE SODIUM [Suspect]
     Dosage: 40 MG, 1X/DAY
     Route: 048
     Dates: start: 20110101, end: 20120204

REACTIONS (3)
  - SHOCK [None]
  - RENAL FAILURE ACUTE [None]
  - PULMONARY EMBOLISM [None]
